FAERS Safety Report 13442797 (Version 2)
Quarter: 2017Q2

REPORT INFORMATION
  Report Type: Spontaneous
  Country: US (occurrence: US)
  Receive Date: 20170414
  Receipt Date: 20170504
  Transmission Date: 20170830
  Serious: No
  Sender: FDA-Public Use
  Company Number: US-PFIZER INC-2017154367

PATIENT
  Age: 2 Year
  Sex: Male

DRUGS (2)
  1. EUCRISA [Suspect]
     Active Substance: CRISABOROLE
     Indication: ECZEMA
     Dosage: UNK, 2X/DAY [TO AFFECTED AREAS]
     Route: 061
     Dates: start: 20170223
  2. EUCRISA [Suspect]
     Active Substance: CRISABOROLE
     Indication: DERMATITIS ATOPIC

REACTIONS (8)
  - Crying [Unknown]
  - Dermatitis [Recovering/Resolving]
  - Rash [Unknown]
  - Skin lesion [Unknown]
  - Scab [Unknown]
  - Skin exfoliation [Unknown]
  - Application site dryness [Unknown]
  - Application site pain [Unknown]

NARRATIVE: CASE EVENT DATE: 2017
